FAERS Safety Report 9673843 (Version 1)
Quarter: 2013Q4

REPORT INFORMATION
  Report Type: Spontaneous
  Country: US (occurrence: US)
  Receive Date: 20131106
  Receipt Date: 20131106
  Transmission Date: 20140711
  Serious: Yes (Other)
  Sender: FDA-Public Use
  Company Number: US-AMGEN-USASP2013071510

PATIENT
  Age: 75 Year
  Sex: Male

DRUGS (2)
  1. ENBREL [Suspect]
     Indication: RHEUMATOID ARTHRITIS
     Dosage: 50 MG, ONCE WEEKLY
     Route: 065
     Dates: start: 20130801
  2. METHOTREXATE [Concomitant]
     Dosage: 8 TABLETS WEEKLY  2.5MILLIGRAM TABLETS

REACTIONS (2)
  - Lower respiratory tract infection [Recovered/Resolved]
  - Haemoptysis [Recovered/Resolved]
